FAERS Safety Report 5853700-0 (Version None)
Quarter: 2008Q3

REPORT INFORMATION
  Report Type: 
  Country: None (occurrence: None)
  Receive Date: 20080822
  Receipt Date: 20080815
  Transmission Date: 20090109
  Serious: Yes (Other)
  Sender: FDA-Public Use
  Company Number: PHBS2008US05420

PATIENT
  Age: 62 Year
  Sex: Female

DRUGS (4)
  1. LETROZOLE [Suspect]
     Indication: BREAST CANCER STAGE IV
  2. ANASTROZOLE [Suspect]
  3. FULVESTRANT [Suspect]
  4. TRASTUZUMAB [Concomitant]

REACTIONS (4)
  - BIOPSY SKIN [None]
  - CUTANEOUS VASCULITIS [None]
  - PARAKERATOSIS [None]
  - SKIN LESION [None]
